FAERS Safety Report 5162766-5 (Version None)
Quarter: 2006Q4

REPORT INFORMATION
  Report Type: 
  Country: None (occurrence: None)
  Receive Date: 20061201
  Receipt Date: 20061018
  Transmission Date: 20070319
  Serious: Yes (Other)
  Sender: FDA-Public Use
  Company Number: 2006PK02121

PATIENT
  Age: 827 Month
  Sex: Male
  Weight: 78 kg

DRUGS (2)
  1. SYMBICORT [Suspect]
     Indication: CHRONIC OBSTRUCTIVE PULMONARY DISEASE
     Dosage: 320/9 UG, ONE INHALATION BID
     Route: 055
     Dates: start: 20060113, end: 20060214
  2. SYMBICORT [Suspect]
     Dosage: 320/9 UG, ONE INHALATION QD
     Route: 055
     Dates: start: 20060215

REACTIONS (1)
  - CHRONIC LYMPHOCYTIC LEUKAEMIA [None]
